FAERS Safety Report 22621626 (Version 1)
Quarter: 2023Q2

REPORT INFORMATION
  Report Type: Spontaneous
  Country: CN (occurrence: None)
  Receive Date: 20230620
  Receipt Date: 20230620
  Transmission Date: 20230722
  Serious: Yes (Other)
  Sender: FDA-Public Use
  Company Number: 2023A141567

PATIENT
  Age: 40 Year
  Sex: Female
  Weight: 61.8 kg

DRUGS (1)
  1. DAPAGLIFLOZIN [Suspect]
     Active Substance: DAPAGLIFLOZIN
     Indication: Type 2 diabetes mellitus
     Route: 048
     Dates: start: 20230526, end: 20230606

REACTIONS (1)
  - Urine ketone body present [Unknown]

NARRATIVE: CASE EVENT DATE: 20230527
